FAERS Safety Report 5701950-6 (Version None)
Quarter: 2008Q2

REPORT INFORMATION
  Report Type: 
  Country: None (occurrence: None)
  Receive Date: 20080411
  Receipt Date: 20070323
  Transmission Date: 20081010
  Serious: Yes (Hospitalization)
  Sender: FDA-Public Use
  Company Number: US-ABBOTT-07P-163-0362381-00

PATIENT
  Sex: Male
  Weight: 35.412 kg

DRUGS (2)
  1. DEPAKOTE [Suspect]
     Indication: BIPOLAR DISORDER
     Route: 048
     Dates: start: 20000101, end: 20070307
  2. DEPAKOTE [Suspect]
     Route: 048
     Dates: start: 20070307

REACTIONS (8)
  - AGGRESSION [None]
  - CONTUSION [None]
  - EMOTIONAL DISORDER [None]
  - GAIT DISTURBANCE [None]
  - HALLUCINATION [None]
  - PLATELET COUNT DECREASED [None]
  - PSYCHOTIC DISORDER [None]
  - TREMOR [None]
